FAERS Safety Report 11997463 (Version 2)
Quarter: 2016Q1

REPORT INFORMATION
  Report Type: Report from Study
  Country: CO (occurrence: CO)
  Receive Date: 20160203
  Receipt Date: 20160205
  Transmission Date: 20160526
  Serious: Yes (Death, Life-Threatening, Hospitalization, Other)
  Sender: FDA-Public Use
  Company Number: CO-AMGEN-COLSL2016011431

PATIENT
  Age: 31 Year
  Sex: Male
  Weight: 48 kg

DRUGS (1)
  1. VECTIBIX [Suspect]
     Active Substance: PANITUMUMAB
     Indication: COLORECTAL CANCER METASTATIC
     Dosage: 200 MG, EVERY 20 DAYS
     Route: 042
     Dates: start: 20151207

REACTIONS (10)
  - Death [Fatal]
  - Oedema peripheral [Recovering/Resolving]
  - General physical health deterioration [Unknown]
  - Fluid retention [Unknown]
  - Localised oedema [Recovering/Resolving]
  - Back pain [Recovering/Resolving]
  - Weight decreased [Unknown]
  - Dysuria [Recovering/Resolving]
  - Testicular oedema [Recovering/Resolving]
  - Decreased appetite [Unknown]

NARRATIVE: CASE EVENT DATE: 201601
